FAERS Safety Report 9160921 (Version 1)
Quarter: 2013Q1

REPORT INFORMATION
  Report Type: Spontaneous
  Country: US (occurrence: US)
  Receive Date: 20130313
  Receipt Date: 20130313
  Transmission Date: 20140127
  Serious: No
  Sender: FDA-Public Use
  Company Number: US-ASTRAZENECA-2013SE08514

PATIENT
  Age: 44 Year
  Sex: Male

DRUGS (5)
  1. NEXIUM [Suspect]
     Indication: GASTROOESOPHAGEAL REFLUX DISEASE
     Route: 048
     Dates: start: 2011
  2. SYMBICORT [Suspect]
     Indication: ASTHMA
     Dosage: TWO PUFFS TWICE A DAY
     Route: 055
     Dates: start: 2011
  3. PLENDIL [Suspect]
     Indication: HYPERTENSION
     Route: 048
     Dates: start: 2011
  4. ALBUTEROL [Concomitant]
     Indication: ASTHMA
  5. NEBULIZER [Concomitant]
     Indication: ASTHMA

REACTIONS (7)
  - Dyspepsia [Unknown]
  - Gastrooesophageal reflux disease [Unknown]
  - Pain [Unknown]
  - Abdominal pain upper [Unknown]
  - Vomiting [Unknown]
  - Intentional drug misuse [Unknown]
  - Drug dose omission [Unknown]
